FAERS Safety Report 21502520 (Version 1)
Quarter: 2022Q4

REPORT INFORMATION
  Report Type: Spontaneous
  Country: US (occurrence: US)
  Receive Date: 20221025
  Receipt Date: 20221025
  Transmission Date: 20230112
  Serious: Yes (Life-Threatening, Hospitalization, Other)
  Sender: FDA-Public Use
  Company Number: US-drreddys-LIT/USA/22/0156275

PATIENT
  Age: 64 Year
  Sex: Female

DRUGS (3)
  1. CARVEDILOL [Suspect]
     Active Substance: CARVEDILOL
     Indication: Suicide attempt
  2. NIFEDIPINE [Suspect]
     Active Substance: NIFEDIPINE
     Indication: Suicide attempt
  3. LOSARTAN [Suspect]
     Active Substance: LOSARTAN
     Indication: Suicide attempt

REACTIONS (3)
  - Product use in unapproved indication [Unknown]
  - Shock [Unknown]
  - Intentional overdose [Unknown]
